FAERS Safety Report 8309783-1 (Version None)
Quarter: 2012Q2

REPORT INFORMATION
  Report Type: 
  Country: None (occurrence: None)
  Receive Date: 20120425
  Receipt Date: 20120418
  Transmission Date: 20120825
  Serious: No
  Sender: FDA-Public Use
  Company Number: PHEH2012US008672

PATIENT
  Sex: Female

DRUGS (5)
  1. TASIGNA [Suspect]
     Dosage: 2 DF, Q12H
     Route: 048
  2. OXYCONTIN [Concomitant]
     Dosage: 30 MG, UNK
  3. PAXIL [Concomitant]
     Dosage: 10 MG, UNK
  4. POTASSIUM CHLORIDE [Concomitant]
     Dosage: 75 MG, UNK
  5. ALLOPURINOL [Concomitant]
     Dosage: 100 MG, UNK

REACTIONS (6)
  - INSOMNIA [None]
  - PAIN IN EXTREMITY [None]
  - FATIGUE [None]
  - NAUSEA [None]
  - ALOPECIA [None]
  - HEADACHE [None]
